FAERS Safety Report 8275305-7 (Version None)
Quarter: 2012Q2

REPORT INFORMATION
  Report Type: 
  Country: None (occurrence: None)
  Receive Date: 20120411
  Receipt Date: 20120330
  Transmission Date: 20120825
  Serious: Yes (Hospitalization)
  Sender: FDA-Public Use
  Company Number: GB-PFIZER INC-2012080175

PATIENT
  Age: 67 Year
  Sex: Male

DRUGS (3)
  1. SUTENT [Suspect]
     Indication: URETHRAL CANCER
     Dosage: 12.5 MG, UNK
     Dates: start: 20110926, end: 20120203
  2. GEMCITABINE [Suspect]
     Indication: URETHRAL CANCER
     Dosage: UNK
     Route: 042
     Dates: start: 20110926, end: 20120130
  3. CISPLATIN [Suspect]
     Indication: URETHRAL CANCER
     Dosage: UNK
     Route: 042
     Dates: start: 20110926, end: 20120123

REACTIONS (1)
  - GASTROENTERITIS [None]
